FAERS Safety Report 25635860 (Version 2)
Quarter: 2025Q4

REPORT INFORMATION
  Report Type: Spontaneous
  Country: EU (occurrence: EU)
  Receive Date: 20250802
  Receipt Date: 20251021
  Transmission Date: 20260118
  Serious: Yes (Hospitalization, Other)
  Sender: AUROBINDO
  Company Number: EU-AEMPS-1736010

PATIENT
  Age: 25 Year
  Sex: Female

DRUGS (3)
  1. FUROSEMIDE [Interacting]
     Active Substance: FUROSEMIDE
     Indication: Cardiac failure
     Dosage: 100 MILLIGRAM, ONCE A DAY
     Route: 048
     Dates: start: 20250519, end: 20250529
  2. CHLORTHALIDONE [Interacting]
     Active Substance: CHLORTHALIDONE
     Indication: Cardiac failure
     Dosage: 50 MILLIGRAM, ONCE A DAY
     Route: 048
     Dates: start: 20250522, end: 20250526
  3. ACETAZOLAMIDE [Interacting]
     Active Substance: ACETAZOLAMIDE
     Indication: Cardiac failure acute
     Dosage: 250 MILLIGRAM, TWO TIMES A DAY
     Route: 048
     Dates: start: 20250523, end: 20250527

REACTIONS (1)
  - Hypokalaemia [Recovered/Resolved]

NARRATIVE: CASE EVENT DATE: 20250529
